FAERS Safety Report 20794575 (Version 2)
Quarter: 2023Q2

REPORT INFORMATION
  Report Type: Spontaneous
  Country: US (occurrence: US)
  Receive Date: 20220506
  Receipt Date: 20230531
  Transmission Date: 20230722
  Serious: No
  Sender: FDA-Public Use
  Company Number: US-UCBSA-2021048050

PATIENT
  Sex: Female

DRUGS (1)
  1. CIMZIA [Suspect]
     Active Substance: CERTOLIZUMAB PEGOL
     Indication: Product used for unknown indication
     Dosage: LOADING DOSES
     Dates: start: 20210825

REACTIONS (3)
  - Injection site pain [Not Recovered/Not Resolved]
  - Injection site discolouration [Not Recovered/Not Resolved]
  - Product quality issue [Unknown]
